FAERS Safety Report 8059380-0 (Version None)
Quarter: 2012Q1

REPORT INFORMATION
  Report Type: 
  Country: None (occurrence: None)
  Receive Date: 20120120
  Receipt Date: 20120116
  Transmission Date: 20120608
  Serious: Yes (Hospitalization)
  Sender: FDA-Public Use
  Company Number: DE-PFIZER INC-2012011813

PATIENT
  Sex: Female
  Weight: 69 kg

DRUGS (3)
  1. IBUPROFEN [Suspect]
     Indication: BACK PAIN
     Dosage: 600 MG, 2X/DAY
     Route: 048
     Dates: start: 20110808, end: 20110809
  2. AMOXICILLIN [Suspect]
     Dosage: 1000 MG, 3X/DAY
     Route: 048
     Dates: start: 20110808, end: 20110809
  3. IBUPROFEN [Suspect]
     Dosage: 400 MG, 2X DAILY, 3X MONTHLY
     Route: 048

REACTIONS (2)
  - RENAL FAILURE ACUTE [None]
  - BLOOD CREATININE INCREASED [None]
